FAERS Safety Report 5393434-2 (Version None)
Quarter: 2007Q3

REPORT INFORMATION
  Report Type: 
  Country: None (occurrence: None)
  Receive Date: 20070723
  Receipt Date: 20070711
  Transmission Date: 20080115
  Serious: Yes (Other)
  Sender: FDA-Public Use
  Company Number: PHBS2007BR11900

PATIENT
  Age: 36 Year
  Sex: Female

DRUGS (4)
  1. RITALIN [Suspect]
     Indication: ATTENTION DEFICIT/HYPERACTIVITY DISORDER
     Dosage: 20 MG/DAY
     Route: 048
  2. RITALIN [Suspect]
     Dosage: 10 MG/DAY
     Route: 048
  3. TOPAMAX [Concomitant]
     Indication: DEPRESSION
     Route: 048
  4. WELLBUTRIN [Concomitant]
     Indication: DEPRESSION
     Route: 048

REACTIONS (2)
  - ANXIETY [None]
  - HEART RATE ABNORMAL [None]
